FAERS Safety Report 5999658-5 (Version None)
Quarter: 2008Q4

REPORT INFORMATION
  Report Type: 
  Country: None (occurrence: None)
  Receive Date: 20081215
  Receipt Date: 20081202
  Transmission Date: 20090506
  Serious: Yes (Hospitalization, Disabling)
  Sender: FDA-Public Use
  Company Number: US-ROCHE-396709

PATIENT
  Sex: Female
  Weight: 54.4 kg

DRUGS (2)
  1. ACCUTANE [Suspect]
     Indication: ACNE
     Route: 048
     Dates: start: 19990730, end: 19990901
  2. ACCUTANE [Suspect]
     Route: 048
     Dates: start: 19991029, end: 20000526

REACTIONS (20)
  - ACNE [None]
  - BLOOD CHOLESTEROL INCREASED [None]
  - COLITIS [None]
  - COLITIS ULCERATIVE [None]
  - CROHN'S DISEASE [None]
  - DRY SKIN [None]
  - FATIGUE [None]
  - GASTROINTESTINAL DISORDER [None]
  - GASTROINTESTINAL STOMA COMPLICATION [None]
  - INFLAMMATORY BOWEL DISEASE [None]
  - INTESTINAL HAEMORRHAGE [None]
  - LIP DRY [None]
  - MULTI-ORGAN DISORDER [None]
  - NEPHROLITHIASIS [None]
  - OVARIAN CYST [None]
  - POUCHITIS [None]
  - PROCTITIS [None]
  - RASH [None]
  - RECTAL HAEMORRHAGE [None]
  - RENAL DISORDER [None]
